FAERS Safety Report 18657237 (Version 1)
Quarter: 2020Q4

REPORT INFORMATION
  Report Type: Report from Study
  Country: US (occurrence: US)
  Receive Date: 20201223
  Receipt Date: 20201223
  Transmission Date: 20210114
  Serious: Yes (Hospitalization, Other)
  Sender: FDA-Public Use
  Company Number: US-TAIHO ONCOLOGY  INC-EU-2020-04361

PATIENT
  Age: 59 Year
  Sex: Male
  Weight: 56.75 kg

DRUGS (5)
  1. TYLENOL [Concomitant]
     Active Substance: ACETAMINOPHEN
  2. DILANTIN [Concomitant]
     Active Substance: PHENYTOIN
  3. STIVARGA [Suspect]
     Active Substance: REGORAFENIB
     Indication: PRODUCT USED FOR UNKNOWN INDICATION
     Dates: start: 20201118
  4. PYRIDIUM [Concomitant]
     Active Substance: PHENAZOPYRIDINE
  5. LONSURF [Suspect]
     Active Substance: TIPIRACIL HYDROCHLORIDE\TRIFLURIDINE
     Indication: COLORECTAL CANCER METASTATIC
     Dosage: CYCLE UNKNOWN
     Route: 048
     Dates: start: 20201123

REACTIONS (4)
  - Fluid retention [Unknown]
  - Faeces discoloured [Unknown]
  - Blood loss anaemia [Unknown]
  - Abdominal discomfort [Unknown]

NARRATIVE: CASE EVENT DATE: 202012
